FAERS Safety Report 8431756-9 (Version None)
Quarter: 2012Q2

REPORT INFORMATION
  Report Type: 
  Country: None (occurrence: None)
  Receive Date: 20120613
  Receipt Date: 20120605
  Transmission Date: 20120825
  Serious: Yes (Other)
  Sender: FDA-Public Use
  Company Number: JP-ASTELLAS-2012JP005205

PATIENT
  Age: 65 Year
  Sex: Male

DRUGS (5)
  1. FLUDARABINE PHOSPHATE [Concomitant]
     Route: 065
  2. BUSULFAN [Concomitant]
     Route: 065
  3. PROGRAF [Suspect]
     Dosage: 2.4 MG, UNKNOWN/D
     Route: 048
  4. METHOTREXATE [Concomitant]
     Indication: PROPHYLAXIS AGAINST GRAFT VERSUS HOST DISEASE
     Route: 065
  5. PROGRAF [Suspect]
     Indication: PROPHYLAXIS AGAINST GRAFT VERSUS HOST DISEASE
     Dosage: UNK
     Route: 041

REACTIONS (3)
  - GRAFT VERSUS HOST DISEASE [None]
  - DRUG INEFFECTIVE [None]
  - RENAL DISORDER [None]
